FAERS Safety Report 21772056 (Version 2)
Quarter: 2023Q1

REPORT INFORMATION
  Report Type: Spontaneous
  Country: US (occurrence: US)
  Receive Date: 20221223
  Receipt Date: 20230328
  Transmission Date: 20230418
  Serious: No
  Sender: FDA-Public Use
  Company Number: US-CTI BIOPHARMA-2022US03036

PATIENT

DRUGS (1)
  1. VONJO [Suspect]
     Active Substance: PACRITINIB
     Indication: Myelofibrosis
     Dosage: 200 MG, BID
     Route: 048
     Dates: start: 20220621

REACTIONS (6)
  - Cardiac disorder [Unknown]
  - Thyroid hormones increased [Unknown]
  - Feeling abnormal [Unknown]
  - Heart rate irregular [Unknown]
  - Product dose omission issue [Recovered/Resolved]
  - Haemoglobin decreased [Unknown]
